FAERS Safety Report 5479144-1 (Version None)
Quarter: 2007Q4

REPORT INFORMATION
  Report Type: 
  Country: None (occurrence: None)
  Receive Date: 20071008
  Receipt Date: 20071003
  Transmission Date: 20080405
  Serious: Yes (Death, Other)
  Sender: FDA-Public Use
  Company Number: PHBS2007FR16474

PATIENT
  Age: 44 Year
  Sex: Male

DRUGS (1)
  1. IMATINIB [Suspect]
     Indication: GASTROINTESTINAL STROMAL TUMOUR
     Dosage: 400 MG/D
     Route: 065

REACTIONS (5)
  - BONE MARROW NECROSIS [None]
  - DEATH [None]
  - METASTASES TO HEART [None]
  - METASTASES TO PLEURA [None]
  - METASTASES TO THE MEDIASTINUM [None]
